FAERS Safety Report 23627515 (Version 1)
Quarter: 2024Q1

REPORT INFORMATION
  Report Type: Spontaneous
  Country: BR (occurrence: BR)
  Receive Date: 20240313
  Receipt Date: 20240313
  Transmission Date: 20240410
  Serious: Yes (Other)
  Sender: FDA-Public Use
  Company Number: BR-Merck Healthcare KGaA-2024012356

PATIENT
  Age: 88 Year

DRUGS (1)
  1. TEPMETKO [Suspect]
     Active Substance: TEPOTINIB HYDROCHLORIDE
     Indication: Non-small cell lung cancer
     Dates: start: 202310

REACTIONS (3)
  - Ocular vascular disorder [Unknown]
  - Pulmonary thrombosis [Unknown]
  - Oedema [Unknown]
